FAERS Safety Report 25851648 (Version 1)
Quarter: 2025Q3

REPORT INFORMATION
  Report Type: Spontaneous
  Country: JP (occurrence: JP)
  Receive Date: 20250926
  Receipt Date: 20250926
  Transmission Date: 20251021
  Serious: Yes (Other)
  Sender: CHEPLAPHARM
  Company Number: JP-CP_KK-2025JP004852

PATIENT
  Age: 75 Year
  Sex: Female

DRUGS (1)
  1. HYDROXYUREA [Suspect]
     Active Substance: HYDROXYUREA
     Indication: Blood disorder
     Route: 048

REACTIONS (4)
  - Intracranial haematoma [Unknown]
  - Fall [Unknown]
  - Dizziness [Unknown]
  - Off label use [Unknown]
